FAERS Safety Report 14838587 (Version 5)
Quarter: 2020Q1

REPORT INFORMATION
  Report Type: Spontaneous
  Country: US (occurrence: US)
  Receive Date: 20180502
  Receipt Date: 20200123
  Transmission Date: 20200409
  Serious: Yes (Other)
  Sender: FDA-Public Use
  Company Number: US-ASTRAZENECA-2018SE52130

PATIENT
  Age: 67 Year
  Sex: Female
  Weight: 81.6 kg

DRUGS (43)
  1. PRILOSEC [Suspect]
     Active Substance: OMEPRAZOLE MAGNESIUM
     Indication: ABDOMINAL DISCOMFORT
     Route: 048
     Dates: start: 2013
  2. PRILOSEC OTC [Suspect]
     Active Substance: OMEPRAZOLE MAGNESIUM
     Route: 048
     Dates: start: 2013, end: 2016
  3. BENADRYL [Concomitant]
     Active Substance: DIPHENHYDRAMINE HYDROCHLORIDE
     Indication: SINUS DISORDER
  4. BENADRYL [Concomitant]
     Active Substance: DIPHENHYDRAMINE HYDROCHLORIDE
     Indication: HYPERSENSITIVITY
  5. PENICILLIN [Concomitant]
     Active Substance: PENICILLIN
     Indication: INFECTION
  6. PRILOSEC [Suspect]
     Active Substance: OMEPRAZOLE MAGNESIUM
     Indication: GASTRIC DISORDER
     Route: 048
     Dates: start: 2013
  7. GABAPENTIN. [Concomitant]
     Active Substance: GABAPENTIN
  8. ZOLPIDEM [Concomitant]
     Active Substance: ZOLPIDEM TARTRATE
  9. PAROXETINE. [Concomitant]
     Active Substance: PAROXETINE
  10. ACCURETIC [Concomitant]
     Active Substance: HYDROCHLOROTHIAZIDE\QUINAPRIL HYDROCHLORIDE
  11. AMITIZA [Concomitant]
     Active Substance: LUBIPROSTONE
  12. MYRBETRIQ [Concomitant]
     Active Substance: MIRABEGRON
  13. SPIRIVA [Concomitant]
     Active Substance: TIOTROPIUM BROMIDE MONOHYDRATE
  14. PENICILLIN [Concomitant]
     Active Substance: PENICILLIN
  15. ASPIRIN. [Concomitant]
     Active Substance: ASPIRIN
     Indication: ANTICOAGULANT THERAPY
  16. VITAMIN WOMEMENS VOWL [Concomitant]
     Indication: IMMUNE SYSTEM DISORDER
  17. FENOPROFEN. [Concomitant]
     Active Substance: FENOPROFEN
     Indication: ARTHRITIS
  18. MECLIZINE [Concomitant]
     Active Substance: MECLIZINE HYDROCHLORIDE
  19. FUROSEMIDE. [Concomitant]
     Active Substance: FUROSEMIDE
  20. SYMBICORT [Concomitant]
     Active Substance: BUDESONIDE\FORMOTEROL FUMARATE DIHYDRATE
  21. CRESTOR [Concomitant]
     Active Substance: ROSUVASTATIN CALCIUM
  22. DIAZEPAM. [Concomitant]
     Active Substance: DIAZEPAM
  23. VIT D 3 [Concomitant]
     Indication: IMMUNISATION
  24. PRILOSEC [Suspect]
     Active Substance: OMEPRAZOLE MAGNESIUM
     Indication: ABDOMINAL DISCOMFORT
     Dosage: GENERIC 20 MG
     Route: 065
     Dates: start: 2014
  25. PRILOSEC [Suspect]
     Active Substance: OMEPRAZOLE MAGNESIUM
     Indication: GASTRIC DISORDER
     Dosage: GENERIC 20 MG
     Route: 065
     Dates: start: 2014, end: 2015
  26. ALLOPURINOL. [Concomitant]
     Active Substance: ALLOPURINOL
  27. PRILOSEC [Suspect]
     Active Substance: OMEPRAZOLE MAGNESIUM
     Indication: GASTRIC DISORDER
     Dosage: 20 MG
     Route: 048
     Dates: start: 2004
  28. PRILOSEC [Suspect]
     Active Substance: OMEPRAZOLE MAGNESIUM
     Indication: ABDOMINAL DISCOMFORT
     Dosage: GENERIC 20 MG
     Route: 065
     Dates: start: 2014, end: 2015
  29. FENTANYL. [Concomitant]
     Active Substance: FENTANYL
  30. TIZANIDINE. [Concomitant]
     Active Substance: TIZANIDINE
  31. BENADRYL [Concomitant]
     Active Substance: DIPHENHYDRAMINE HYDROCHLORIDE
     Indication: ASTHMA
  32. PRILOSEC [Suspect]
     Active Substance: OMEPRAZOLE MAGNESIUM
     Indication: GASTRIC DISORDER
     Route: 048
     Dates: start: 2013, end: 2016
  33. LORATADINE. [Concomitant]
     Active Substance: LORATADINE
  34. AMOXICILLIN. [Concomitant]
     Active Substance: AMOXICILLIN
  35. PRILOSEC [Suspect]
     Active Substance: OMEPRAZOLE MAGNESIUM
     Indication: GASTRIC DISORDER
     Dosage: GENERIC 20 MG
     Route: 065
     Dates: start: 2014
  36. PROAIR HFA [Concomitant]
     Active Substance: ALBUTEROL SULFATE
  37. LEVOFLOXACIN. [Concomitant]
     Active Substance: LEVOFLOXACIN
  38. FLUOXETINE [Concomitant]
     Active Substance: FLUOXETINE HYDROCHLORIDE
  39. FISH OIL [Concomitant]
     Active Substance: FISH OIL
     Indication: CARDIAC DISORDER
  40. OXYCODONE/APAP [Concomitant]
     Active Substance: ACETAMINOPHEN\OXYCODONE HYDROCHLORIDE
  41. PRILOSEC [Suspect]
     Active Substance: OMEPRAZOLE MAGNESIUM
     Indication: ABDOMINAL DISCOMFORT
     Route: 048
     Dates: start: 2013, end: 2016
  42. PRILOSEC [Suspect]
     Active Substance: OMEPRAZOLE MAGNESIUM
     Indication: ABDOMINAL DISCOMFORT
     Dosage: 20 MG
     Route: 048
     Dates: start: 2004
  43. LANSOPRAZOLE. [Suspect]
     Active Substance: LANSOPRAZOLE
     Route: 065

REACTIONS (3)
  - Renal injury [Unknown]
  - Acute kidney injury [Unknown]
  - Chronic kidney disease [Not Recovered/Not Resolved]

NARRATIVE: CASE EVENT DATE: 2013
